FAERS Safety Report 16930976 (Version 1)
Quarter: 2019Q4

REPORT INFORMATION
  Report Type: Spontaneous
  Country: US (occurrence: US)
  Receive Date: 20191017
  Receipt Date: 20191017
  Transmission Date: 20200122
  Serious: No
  Sender: FDA-Public Use
  Company Number: US-ASCEND THERAPEUTICS US, LLC-2075776

PATIENT
  Age: 49 Year
  Sex: Female

DRUGS (4)
  1. ESTROGEL [Suspect]
     Active Substance: ESTRADIOL
     Indication: HORMONE REPLACEMENT THERAPY
     Route: 062
     Dates: start: 201811, end: 20190928
  2. ESTRADIOL (PATCH), (UNKNOWN)?INDICATIONS FOR USE: HRT [Concomitant]
     Route: 062
  3. MORPHINE (UNKNOWN)?INDICATION FOR USE: DEGENERATIVE DISC DISEASE/BACK [Suspect]
     Active Substance: MORPHINE
     Route: 042
  4. ESTRADIOL (PILL) (UNKNOWN)?INDICATION FOR USE: HRT [Concomitant]
     Route: 048

REACTIONS (3)
  - Hot flush [Not Recovered/Not Resolved]
  - Feeling abnormal [Unknown]
  - Product dose omission [None]

NARRATIVE: CASE EVENT DATE: 20191001
